FAERS Safety Report 12657912 (Version 2)
Quarter: 2016Q3

REPORT INFORMATION
  Report Type: Spontaneous
  Country: DE (occurrence: DE)
  Receive Date: 20160816
  Receipt Date: 20160912
  Transmission Date: 20161109
  Serious: Yes (Hospitalization, Disabling, Other)
  Sender: FDA-Public Use
  Company Number: DE-009507513-1608DEU005927

PATIENT
  Age: 64 Year
  Sex: Male
  Weight: 90 kg

DRUGS (1)
  1. TEMOZOLOMIDE. [Suspect]
     Active Substance: TEMOZOLOMIDE
     Indication: GLIOBLASTOMA MULTIFORME
     Dosage: 160 MG,ON EACH RADIOTHERAPY COURSE
     Route: 048
     Dates: start: 20160531, end: 20160708

REACTIONS (2)
  - Polyuria [Not Recovered/Not Resolved]
  - Diabetes insipidus [Recovering/Resolving]

NARRATIVE: CASE EVENT DATE: 20160701
